FAERS Safety Report 19132064 (Version 1)
Quarter: 2021Q2

REPORT INFORMATION
  Report Type: Spontaneous
  Country: ES (occurrence: ES)
  Receive Date: 20210413
  Receipt Date: 20210413
  Transmission Date: 20210717
  Serious: Yes (Other)
  Sender: FDA-Public Use
  Company Number: ES-TEVA-2021-ES-1899858

PATIENT
  Age: 80 Year
  Sex: Female
  Weight: 78 kg

DRUGS (2)
  1. CIPROFLOXACINO ALTER 500 MG COMPRIMIDOS RECUBIERTOS CON PELICULA EFG, [Suspect]
     Active Substance: CIPROFLOXACIN HYDROCHLORIDE
     Dosage: 500MILLIGRAM
     Route: 048
     Dates: start: 20210310, end: 20210313
  2. LEVOFLOXACINO (2791A) [Suspect]
     Active Substance: LEVOFLOXACIN
     Route: 048
     Dates: start: 20210310, end: 20210313

REACTIONS (1)
  - Generalised tonic-clonic seizure [Recovered/Resolved]

NARRATIVE: CASE EVENT DATE: 20210313
